FAERS Safety Report 9135885 (Version 1)
Quarter: 2013Q1

REPORT INFORMATION
  Report Type: Spontaneous
  Country: None (occurrence: US)
  Receive Date: 20130304
  Receipt Date: 20130304
  Transmission Date: 20140127
  Serious: No
  Sender: FDA-Public Use
  Company Number: US-ABBOTT-12P-163-0920232-00

PATIENT
  Age: 48 None
  Sex: Male

DRUGS (5)
  1. ANDROGEL 1% [Suspect]
     Indication: BLOOD TESTOSTERONE DECREASED
     Dosage: 10 GRAMS PER DAY
     Route: 061
     Dates: start: 200812, end: 201103
  2. ANDROGEL 1% [Suspect]
     Indication: HYPOGONADISM
  3. ANDROGEL 1.62% [Suspect]
     Indication: BLOOD TESTOSTERONE DECREASED
     Dosage: 3 PUMPS PER DAY 60.75 MG
     Route: 061
     Dates: start: 201108
  4. UNKNOWN ANTIHYPERTENSIVE MEDICATION [Concomitant]
     Indication: BLOOD PRESSURE
  5. NEXIUM [Concomitant]
     Indication: GASTROOESOPHAGEAL REFLUX DISEASE

REACTIONS (6)
  - Somnolence [Not Recovered/Not Resolved]
  - Increased appetite [Unknown]
  - Anaemia [Not Recovered/Not Resolved]
  - Hot flush [Not Recovered/Not Resolved]
  - Acne [Not Recovered/Not Resolved]
  - Blood testosterone decreased [Not Recovered/Not Resolved]
